FAERS Safety Report 12597490 (Version 9)
Quarter: 2018Q3

REPORT INFORMATION
  Report Type: Spontaneous
  Country: US (occurrence: US)
  Receive Date: 20160727
  Receipt Date: 20180918
  Transmission Date: 20181010
  Serious: No
  Sender: FDA-Public Use
  Company Number: US-PFIZER INC-2016340768

PATIENT
  Age: 62 Year
  Sex: Female
  Weight: 52 kg

DRUGS (2)
  1. IBRANCE [Suspect]
     Active Substance: PALBOCICLIB
     Indication: BREAST CANCER FEMALE
     Dosage: 100 MG, CYCLIC (100MG CAPSULE BY MOUTH ONCE DAILY FOR 3 WEEKS, OFF FOR 1 WEEK)
     Route: 048
  2. IBRANCE [Suspect]
     Active Substance: PALBOCICLIB
     Dosage: 100 MG, CYCLIC (100MG CAPSULE BY MOUTH ONCE DAILY FOR 3 WEEKS, OFF FOR 1 WEEK)
     Route: 048
     Dates: start: 2015

REACTIONS (11)
  - Therapeutic response unexpected [Unknown]
  - Fatigue [Unknown]
  - Tooth loss [Unknown]
  - Hair growth abnormal [Unknown]
  - Full blood count decreased [Unknown]
  - Oral pain [Not Recovered/Not Resolved]
  - Visual impairment [Unknown]
  - White blood cell count decreased [Unknown]
  - Stomatitis [Unknown]
  - Mental disorder [Unknown]
  - Toothache [Unknown]
